FAERS Safety Report 8288289-2 (Version None)
Quarter: 2012Q2

REPORT INFORMATION
  Report Type: 
  Country: None (occurrence: None)
  Receive Date: 20120416
  Receipt Date: 20120411
  Transmission Date: 20120825
  Serious: Yes (Hospitalization)
  Sender: FDA-Public Use
  Company Number: PHHO2010US10859

PATIENT
  Sex: Male

DRUGS (2)
  1. GLIPIZIDE [Suspect]
     Dosage: 05 MG, UNK
     Route: 048
     Dates: start: 20100413
  2. SUTENT [Suspect]
     Indication: METASTATIC RENAL CELL CARCINOMA
     Dosage: 12.5 MG, DAILY
     Route: 048
     Dates: start: 20100506, end: 20100707

REACTIONS (6)
  - SYNCOPE [None]
  - DIZZINESS [None]
  - FALL [None]
  - HYPOGLYCAEMIA [None]
  - DISORIENTATION [None]
  - CONCOMITANT DISEASE PROGRESSION [None]
